FAERS Safety Report 7966583-X (Version None)
Quarter: 2011Q4

REPORT INFORMATION
  Report Type: 
  Country: None (occurrence: None)
  Receive Date: 20111209
  Receipt Date: 20111205
  Transmission Date: 20120403
  Serious: Yes (Other)
  Sender: FDA-Public Use
  Company Number: AR-AMGEN-ARGSP2011055371

PATIENT
  Age: 51 Year
  Sex: Female

DRUGS (2)
  1. CLONAZEPAM [Concomitant]
     Dosage: UNK
  2. ENBREL [Suspect]
     Indication: RHEUMATOID ARTHRITIS
     Dosage: 50 MG, WEEKLY
     Route: 058
     Dates: start: 20110502, end: 20110901

REACTIONS (2)
  - FLUID RETENTION [None]
  - VENTRICULAR ARRHYTHMIA [None]
